FAERS Safety Report 22029517 (Version 1)
Quarter: 2023Q1

REPORT INFORMATION
  Report Type: Spontaneous
  Country: US (occurrence: None)
  Receive Date: 20230221
  Receipt Date: 20230221
  Transmission Date: 20230417
  Serious: Yes (Hospitalization)
  Sender: FDA-Public Use
  Company Number: None

PATIENT
  Age: 82 Year
  Sex: Female
  Weight: 76.2 kg

DRUGS (6)
  1. AVASTIN [Suspect]
     Active Substance: BEVACIZUMAB
     Indication: Ovarian cancer
     Dosage: OTHER FREQUENCY : Q 2 WEEKS;?
     Route: 042
     Dates: start: 20220701
  2. CYCLOPHOSPHAMIDE [Suspect]
     Active Substance: CYCLOPHOSPHAMIDE
     Indication: Ovarian cancer
     Dosage: FREQUENCY : DAILY;?
     Route: 048
     Dates: start: 20220701
  3. COLACE [Concomitant]
  4. HYDROCHLOROTHIAZIDE [Concomitant]
  5. LORATADINE [Concomitant]
  6. XARELTO [Concomitant]

REACTIONS (1)
  - Surgery [None]
